FAERS Safety Report 9244165 (Version 1)
Quarter: 2013Q1

REPORT INFORMATION
  Report Type: Spontaneous
  Country: US (occurrence: None)
  Receive Date: 20121123
  Receipt Date: 20121123
  Transmission Date: 20140127
  Serious: No
  Sender: FDA-Public Use
  Company Number: 363198

PATIENT
  Age: 47 Year
  Sex: Female

DRUGS (4)
  1. VICTOZA [Suspect]
     Indication: TYPE 2 DIABETES MELLITUS
     Route: 058
     Dates: start: 20121011
  2. ENALAPRIL [Concomitant]
  3. ENJUVIA (ESTROGENS CONJUGATED) [Concomitant]
  4. METFORMIN (METFORMIN) [Concomitant]

REACTIONS (2)
  - Nausea [None]
  - Vomiting [None]
